FAERS Safety Report 9474679 (Version 1)
Quarter: 2013Q3

REPORT INFORMATION
  Report Type: Spontaneous
  Country: PL (occurrence: PL)
  Receive Date: 20130823
  Receipt Date: 20130823
  Transmission Date: 20140515
  Serious: Yes (Hospitalization, Other)
  Sender: FDA-Public Use
  Company Number: PL-GE HEALTHCARE MEDICAL DIAGNOSTICS-VISP-PR-1308L-0778

PATIENT
  Age: 61 Year
  Sex: Male

DRUGS (2)
  1. VISIPAQUE [Suspect]
     Indication: PRODUCT USED FOR UNKNOWN INDICATION
     Dosage: DOSE NOT REPORTED
     Route: 065
  2. VISIPAQUE [Suspect]
     Indication: DIAGNOSTIC PROCEDURE

REACTIONS (1)
  - Hyperthyroidism [Recovered/Resolved]
